FAERS Safety Report 25564882 (Version 1)
Quarter: 2025Q3

REPORT INFORMATION
  Report Type: Spontaneous
  Country: US (occurrence: US)
  Receive Date: 20250716
  Receipt Date: 20250716
  Transmission Date: 20251021
  Serious: No
  Sender: NOVO NORDISK
  Company Number: US-NOVOPROD-1332671

PATIENT
  Age: 61 Year
  Sex: Male

DRUGS (2)
  1. OZEMPIC [Suspect]
     Active Substance: SEMAGLUTIDE
     Indication: Type 2 diabetes mellitus
     Route: 058
     Dates: start: 20240222
  2. BUPROPION [Suspect]
     Active Substance: BUPROPION
     Indication: Ex-tobacco user
     Route: 058

REACTIONS (4)
  - Helicobacter infection [Unknown]
  - Abdominal pain upper [Recovered/Resolved]
  - Flatulence [Not Recovered/Not Resolved]
  - Eructation [Recovering/Resolving]

NARRATIVE: CASE EVENT DATE: 20240901
